FAERS Safety Report 8009295-9 (Version None)
Quarter: 2011Q4

REPORT INFORMATION
  Report Type: 
  Country: None (occurrence: None)
  Receive Date: 20111227
  Receipt Date: 20111219
  Transmission Date: 20120403
  Serious: No
  Sender: FDA-Public Use
  Company Number: US-B.I. PHARMACEUTICALS,INC./RIDGEFIELD-2011-BP-28423BP

PATIENT
  Sex: Female

DRUGS (7)
  1. VENTOLIN [Concomitant]
     Indication: ASTHMA
  2. PREVACID [Concomitant]
     Indication: ABDOMINAL DISCOMFORT
  3. SPIRIVA [Suspect]
     Indication: ASTHMA
     Dosage: 18 MCG
     Route: 055
  4. CARDURA [Concomitant]
     Indication: BLADDER DISORDER
  5. DITROPAN [Concomitant]
     Indication: BLADDER DISORDER
  6. VISTARIL [Concomitant]
     Indication: HYPERSENSITIVITY
  7. ADVAIR DISKUS 100/50 [Concomitant]
     Indication: ASTHMA
     Route: 055

REACTIONS (2)
  - CHEST DISCOMFORT [None]
  - DRUG INEFFECTIVE [None]
